FAERS Safety Report 17045132 (Version 1)
Quarter: 2019Q4

REPORT INFORMATION
  Report Type: Spontaneous
  Country: US (occurrence: US)
  Receive Date: 20191118
  Receipt Date: 20191118
  Transmission Date: 20200122
  Serious: No
  Sender: FDA-Public Use
  Company Number: US-BAUSCH-BL-2019-055142

PATIENT
  Sex: Female

DRUGS (2)
  1. BESIVANCE [Suspect]
     Active Substance: BESIFLOXACIN
     Indication: INFECTION
     Dosage: APPROXIMATELY 2 WEEKS AGO, AS DIRECTED
     Route: 047
     Dates: start: 201909, end: 201909
  2. BESIVANCE [Suspect]
     Active Substance: BESIFLOXACIN
     Dosage: REPLACEMENT BOTTLE
     Route: 047
     Dates: start: 201909, end: 20190923

REACTIONS (6)
  - Eye irritation [Not Recovered/Not Resolved]
  - Product physical consistency issue [Unknown]
  - Abnormal sensation in eye [Not Recovered/Not Resolved]
  - Photophobia [Not Recovered/Not Resolved]
  - Product quality issue [Unknown]
  - Product deposit [Unknown]

NARRATIVE: CASE EVENT DATE: 201909
